FAERS Safety Report 5476184-3 (Version None)
Quarter: 2007Q4

REPORT INFORMATION
  Report Type: 
  Country: None (occurrence: None)
  Receive Date: 20071003
  Receipt Date: 20070925
  Transmission Date: 20080405
  Serious: Yes (Other)
  Sender: FDA-Public Use
  Company Number: US-ASTRAZENECA-2007UW22504

PATIENT
  Age: 27 Year
  Sex: Female

DRUGS (1)
  1. SEROQUEL [Suspect]
     Route: 048

REACTIONS (4)
  - DIZZINESS [None]
  - HYPOTENSION [None]
  - LOSS OF CONSCIOUSNESS [None]
  - TACHYCARDIA [None]
